FAERS Safety Report 21631687 (Version 1)
Quarter: 2022Q4

REPORT INFORMATION
  Report Type: Report from Study
  Country: MX (occurrence: MX)
  Receive Date: 20221123
  Receipt Date: 20221123
  Transmission Date: 20230112
  Serious: Yes (Hospitalization)
  Sender: FDA-Public Use
  Company Number: MX-BIOGEN-2022BI01170851

PATIENT
  Age: 3 Year
  Sex: Female

DRUGS (1)
  1. SPINRAZA [Suspect]
     Active Substance: NUSINERSEN
     Indication: Spinal muscular atrophy
     Dosage: 1 APPLICATION VIA INTRATHECAL OF 12 MG OF SPINRAZA (NUSINERSEN) EVERY 4 MONTHS
     Route: 050
     Dates: start: 201905

REACTIONS (9)
  - Pneumonia aspiration [Not Recovered/Not Resolved]
  - Respiratory arrest [Recovered/Resolved]
  - Focal dyscognitive seizures [Not Recovered/Not Resolved]
  - Status epilepticus [Not Recovered/Not Resolved]
  - Hypoxic-ischaemic encephalopathy [Not Recovered/Not Resolved]
  - Pneumonia [Not Recovered/Not Resolved]
  - Muscular weakness [Unknown]
  - Hypotonia [Unknown]
  - Areflexia [Unknown]

NARRATIVE: CASE EVENT DATE: 20221101
